FAERS Safety Report 9676528 (Version 3)
Quarter: 2014Q1

REPORT INFORMATION
  Report Type: Spontaneous
  Country: IT (occurrence: IT)
  Receive Date: 20131107
  Receipt Date: 20140122
  Transmission Date: 20141002
  Serious: Yes (Hospitalization)
  Sender: FDA-Public Use
  Company Number: IT-MYLANLABS-2013S1024263

PATIENT
  Age: 63 Year
  Sex: Female

DRUGS (6)
  1. VENLAFAXINE HYDROCHLORIDE [Suspect]
     Indication: DEPRESSION
     Route: 048
     Dates: start: 20130920, end: 20130920
  2. CARDIOASPIRIN [Concomitant]
     Indication: PRODUCT USED FOR UNKNOWN INDICATION
  3. SIVASTIN [Concomitant]
     Indication: PRODUCT USED FOR UNKNOWN INDICATION
  4. LYRICA [Concomitant]
     Indication: DEPRESSION
  5. TACHIDOL [Concomitant]
     Indication: BACK PAIN
  6. DELAPRIDE [Concomitant]
     Indication: HYPERTENSION

REACTIONS (6)
  - Anxiety [Recovering/Resolving]
  - Hyperhidrosis [Recovering/Resolving]
  - Retching [Recovering/Resolving]
  - Nausea [Recovering/Resolving]
  - Paraesthesia [Recovering/Resolving]
  - Blood bilirubin increased [Recovering/Resolving]
